FAERS Safety Report 5430906-6 (Version None)
Quarter: 2007Q3

REPORT INFORMATION
  Report Type: 
  Country: None (occurrence: None)
  Receive Date: 20070830
  Receipt Date: 20070201
  Transmission Date: 20080115
  Serious: No
  Sender: FDA-Public Use
  Company Number: A0635696A

PATIENT
  Age: 54 Year
  Sex: Male

DRUGS (5)
  1. WELLBUTRIN [Suspect]
     Indication: DEPRESSION
     Dosage: 150MG PER DAY
     Route: 048
     Dates: start: 20070103
  2. ZESTRIL [Concomitant]
  3. POTASSIUM CHLORIDE [Concomitant]
  4. LASIX [Concomitant]
  5. ASCORBIC ACID [Concomitant]

REACTIONS (1)
  - TINNITUS [None]
